FAERS Safety Report 7022493-6 (Version None)
Quarter: 2010Q3

REPORT INFORMATION
  Report Type: 
  Country: None (occurrence: None)
  Receive Date: 20100930
  Receipt Date: 20100925
  Transmission Date: 20110219
  Serious: Yes (Other)
  Sender: FDA-Public Use
  Company Number: RO-ROCHE-730014

PATIENT
  Age: 76 Year
  Sex: Female
  Weight: 50 kg

DRUGS (3)
  1. DIAZEPAM [Suspect]
     Indication: SEDATION
     Route: 065
  2. PROPOFOL [Suspect]
     Indication: SEDATION
     Route: 065
  3. FENTANYL [Suspect]
     Indication: SEDATION
     Route: 065

REACTIONS (1)
  - HYPOXIA [None]
